FAERS Safety Report 6847278-2 (Version None)
Quarter: 2010Q3

REPORT INFORMATION
  Report Type: 
  Country: None (occurrence: None)
  Receive Date: 20100716
  Receipt Date: 20100706
  Transmission Date: 20110219
  Serious: Yes (Other)
  Sender: FDA-Public Use
  Company Number: US-JNJFOC-20091105359

PATIENT
  Sex: Female
  Weight: 63.5 kg

DRUGS (2)
  1. ORTHO EVRA [Suspect]
     Indication: CONTRACEPTION
     Route: 062
  2. NEXIUM [Concomitant]
     Indication: GASTROINTESTINAL DISORDER
     Route: 048

REACTIONS (5)
  - FUNGAL INFECTION [None]
  - NAUSEA [None]
  - PAIN IN EXTREMITY [None]
  - PRODUCT QUALITY ISSUE [None]
  - URINARY TRACT INFECTION [None]
